FAERS Safety Report 11343724 (Version 1)
Quarter: 2015Q3

REPORT INFORMATION
  Report Type: Spontaneous
  Country: US (occurrence: None)
  Receive Date: 20150804
  Receipt Date: 20150804
  Transmission Date: 20151125
  Serious: Yes (Other)
  Sender: FDA-Public Use
  Company Number: ADR-2007-4371

PATIENT
  Age: 10 Year
  Sex: Male

DRUGS (1)
  1. LIORESAL [Suspect]
     Active Substance: BACLOFEN
     Indication: DYSTONIA

REACTIONS (16)
  - Urinary retention [None]
  - Trismus [None]
  - Erythema [None]
  - Bladder dysfunction [None]
  - Seizure [None]
  - Self injurious behaviour [None]
  - Glassy eyes [None]
  - Drug withdrawal syndrome [None]
  - Autonomic dysreflexia [None]
  - Nervous system disorder [None]
  - Muscle spasticity [None]
  - Screaming [None]
  - Human bite [None]
  - Accidental overdose [None]
  - Drooling [None]
  - Heart rate increased [None]

NARRATIVE: CASE EVENT DATE: 20070416
